FAERS Safety Report 21886360 (Version 1)
Quarter: 2023Q1

REPORT INFORMATION
  Report Type: Spontaneous
  Country: JP (occurrence: JP)
  Receive Date: 20230119
  Receipt Date: 20230119
  Transmission Date: 20230417
  Serious: Yes (Life-Threatening, Other)
  Sender: FDA-Public Use
  Company Number: JP-ELI_LILLY_AND_COMPANY-JP202301006037

PATIENT
  Age: 50 Year
  Sex: Female
  Weight: 47 kg

DRUGS (5)
  1. OLANZAPINE [Suspect]
     Active Substance: OLANZAPINE
     Indication: Bipolar disorder
     Dosage: 5 MG, DAILY
     Route: 048
  2. ZYPREXA [Suspect]
     Active Substance: OLANZAPINE
     Indication: Bipolar disorder
     Dosage: UNK MG
     Route: 030
  3. LORAZEPAM [Concomitant]
     Active Substance: LORAZEPAM
  4. BROTIZOLAM [Concomitant]
     Active Substance: BROTIZOLAM
  5. FLUNITRAZEPAM [Concomitant]
     Active Substance: FLUNITRAZEPAM

REACTIONS (6)
  - Cardio-respiratory arrest [Unknown]
  - Respiratory depression [Unknown]
  - Stertor [Unknown]
  - Tachycardia [Unknown]
  - Pyrexia [Unknown]
  - Intentional overdose [Unknown]
